FAERS Safety Report 7800184-9 (Version None)
Quarter: 2011Q4

REPORT INFORMATION
  Report Type: 
  Country: None (occurrence: None)
  Receive Date: 20111006
  Receipt Date: 20110929
  Transmission Date: 20120403
  Serious: Yes (Hospitalization)
  Sender: FDA-Public Use
  Company Number: SE-JNJFOC-20111001269

PATIENT
  Age: 51 Year
  Sex: Female

DRUGS (4)
  1. PREDNISOLONE [Concomitant]
  2. ENALAPRIL MALEATE [Concomitant]
  3. METHOTREXATE [Concomitant]
  4. SIMPONI [Suspect]
     Indication: RHEUMATOID ARTHRITIS
     Route: 058
     Dates: start: 20110302

REACTIONS (2)
  - CHEST PAIN [None]
  - MYOCARDIAL INFARCTION [None]
